FAERS Safety Report 23202218 (Version 1)
Quarter: 2023Q4

REPORT INFORMATION
  Report Type: Spontaneous
  Country: FR (occurrence: FR)
  Receive Date: 20231120
  Receipt Date: 20231120
  Transmission Date: 20240110
  Serious: Yes (Other)
  Sender: FDA-Public Use
  Company Number: None

PATIENT
  Age: 49 Year
  Sex: Female

DRUGS (3)
  1. LEVOTHYROXINE SODIUM [Suspect]
     Active Substance: LEVOTHYROXINE SODIUM
     Indication: Hypothyroidism
     Route: 048
     Dates: start: 2021
  2. GABAPENTIN [Suspect]
     Active Substance: GABAPENTIN
     Indication: Post-acute COVID-19 syndrome
     Dosage: 300 MG THEN 300 MG 3 TIMES DAILY
     Route: 048
     Dates: start: 20230117, end: 20230415
  3. AMITRIPTYLINE [Suspect]
     Active Substance: AMITRIPTYLINE
     Indication: Post-acute COVID-19 syndrome
     Route: 048
     Dates: start: 20230117, end: 20230131

REACTIONS (1)
  - Anal incontinence [Not Recovered/Not Resolved]

NARRATIVE: CASE EVENT DATE: 20230120
